FAERS Safety Report 9648764 (Version 2)
Quarter: 2013Q4

REPORT INFORMATION
  Report Type: Spontaneous
  Country: SA (occurrence: SA)
  Receive Date: 20131028
  Receipt Date: 20131028
  Transmission Date: 20140711
  Serious: Yes (Death)
  Sender: FDA-Public Use
  Company Number: SA-ABBVIE-13P-259-1073828-00

PATIENT
  Age: 28 Week
  Sex: Male
  Weight: 1.3 kg

DRUGS (3)
  1. SURVANTA INTRATRACHEAL [Suspect]
     Indication: NEONATAL RESPIRATORY DISTRESS SYNDROME
     Dosage: SINGLE DOSE JUST AFTER DELIVERY
     Dates: start: 20130325, end: 20130325
  2. GENTAMICIN [Concomitant]
     Indication: PRODUCT USED FOR UNKNOWN INDICATION
     Dosage: 5 MG/48 HRS
     Dates: start: 20130325
  3. AMPICILLIN [Concomitant]
     Indication: PRODUCT USED FOR UNKNOWN INDICATION
     Dosage: 100 MG/KG/DAY
     Dates: start: 20130325

REACTIONS (1)
  - Pulmonary haemorrhage [Fatal]
